FAERS Safety Report 6450213-2 (Version None)
Quarter: 2009Q4

REPORT INFORMATION
  Report Type: 
  Country: None (occurrence: None)
  Receive Date: 20091116
  Receipt Date: 20090904
  Transmission Date: 20100525
  Serious: No
  Sender: FDA-Public Use
  Company Number: WAES 0909USA00777

PATIENT
  Age: 62 Year
  Sex: Female

DRUGS (3)
  1. ISENTRESS [Suspect]
     Indication: HIV INFECTION
     Dosage: 400 MG BID PO
     Route: 048
     Dates: start: 20090831
  2. KALETRA [Concomitant]
  3. VIREAD [Concomitant]

REACTIONS (1)
  - DIARRHOEA [None]
